FAERS Safety Report 11978687 (Version 2)
Quarter: 2016Q1

REPORT INFORMATION
  Report Type: Report from Study
  Country: US (occurrence: US)
  Receive Date: 20160129
  Receipt Date: 20160203
  Transmission Date: 20160526
  Serious: No
  Sender: FDA-Public Use
  Company Number: US-ABBVIE-15K-163-1403682-00

PATIENT
  Sex: Female

DRUGS (2)
  1. HUMIRA [Suspect]
     Active Substance: ADALIMUMAB
     Indication: CROHN^S DISEASE
  2. HUMIRA [Suspect]
     Active Substance: ADALIMUMAB
     Indication: RHEUMATOID ARTHRITIS
     Route: 065

REACTIONS (10)
  - Diastolic dysfunction [Unknown]
  - Nocturnal dyspnoea [Not Recovered/Not Resolved]
  - Device issue [Unknown]
  - Cardiac failure [Unknown]
  - Chest discomfort [Recovered/Resolved]
  - Swelling [Unknown]
  - Weight increased [Not Recovered/Not Resolved]
  - Abdominal pain [Unknown]
  - Incorrect dose administered [Unknown]
  - Abdominal distension [Not Recovered/Not Resolved]

NARRATIVE: CASE EVENT DATE: 2015
